FAERS Safety Report 8690983 (Version 2)
Quarter: 2013Q4

REPORT INFORMATION
  Report Type: Spontaneous
  Country: US (occurrence: US)
  Receive Date: 20120730
  Receipt Date: 20131108
  Transmission Date: 20140711
  Serious: Yes (Hospitalization)
  Sender: FDA-Public Use
  Company Number: US-009507513-1207USA009673

PATIENT
  Age: 54 Year
  Sex: Female

DRUGS (3)
  1. ZOCOR [Suspect]
     Dosage: 20 MG, QD
     Route: 048
  2. PRINIVIL [Suspect]
     Dosage: 5 MG, QD
  3. METFORMIN HYDROCHLORIDE [Suspect]
     Dosage: 1000 MG, BID
     Route: 048

REACTIONS (13)
  - Hypothermia [Unknown]
  - Asthenia [Unknown]
  - Culture urine positive [Unknown]
  - Syncope [Unknown]
  - Urinary tract infection [Unknown]
  - Blood glucose decreased [Unknown]
  - Renal failure acute [Unknown]
  - Hypotension [Unknown]
  - Escherichia test positive [Unknown]
  - Respiratory distress [Unknown]
  - Lactic acidosis [Unknown]
  - Shock [Unknown]
  - Respiratory failure [Unknown]
